FAERS Safety Report 26124334 (Version 1)
Quarter: 2025Q4

REPORT INFORMATION
  Report Type: Spontaneous
  Country: EU (occurrence: EU)
  Receive Date: 20251205
  Receipt Date: 20251205
  Transmission Date: 20260118
  Serious: Yes (Other)
  Sender: ALEXION PHARMACEUTICALS
  Company Number: EU-AstraZeneca-CH-01005180A

PATIENT
  Age: 78 Year
  Sex: Male

DRUGS (1)
  1. IMFINZI [Suspect]
     Active Substance: DURVALUMAB
     Indication: Neoplasm malignant
     Dosage: UNK

REACTIONS (4)
  - Adenocarcinoma of colon [Unknown]
  - Anaemia [Unknown]
  - Diarrhoea [Unknown]
  - Constipation [Unknown]
